FAERS Safety Report 9279395 (Version 1)
Quarter: 2013Q2

REPORT INFORMATION
  Report Type: Spontaneous
  Country: CA (occurrence: CA)
  Receive Date: 20130508
  Receipt Date: 20130516
  Transmission Date: 20140414
  Serious: Yes (Other)
  Sender: FDA-Public Use
  Company Number: CHPA2013CA007726

PATIENT
  Age: 76 Year
  Sex: Female

DRUGS (6)
  1. BUCKLEY^S MIXTURE [Suspect]
     Indication: BRONCHITIS
     Dosage: UNK, UNK
     Route: 048
     Dates: end: 2012
  2. BUCKLEY^S MIXTURE [Suspect]
     Indication: NASAL CONGESTION
  3. BUCKLEY^S BEDTIME [Suspect]
     Indication: BRONCHITIS
     Dosage: 0.25 TSP, UNK
     Route: 048
  4. BUCKLEY^S BEDTIME [Suspect]
     Indication: NASAL CONGESTION
  5. BUCKLEY^S UNKNOWN [Suspect]
     Indication: BRONCHITIS
     Dosage: UNK, UNK
     Route: 048
     Dates: end: 201211
  6. BUCKLEY^S UNKNOWN [Suspect]
     Indication: NASAL CONGESTION

REACTIONS (2)
  - Bronchitis [Not Recovered/Not Resolved]
  - Off label use [Unknown]
